FAERS Safety Report 8024289-5 (Version None)
Quarter: 2012Q1

REPORT INFORMATION
  Report Type: 
  Country: None (occurrence: None)
  Receive Date: 20120103
  Receipt Date: 20111220
  Transmission Date: 20120608
  Serious: Yes (Hospitalization)
  Sender: FDA-Public Use
  Company Number: 2011SP059052

PATIENT
  Age: 57 Year
  Sex: Male
  Weight: 95.709 kg

DRUGS (9)
  1. VICTRELIS [Suspect]
     Indication: PRODUCT USED FOR UNKNOWN INDICATION
     Dosage: 200 MG;QD;PO
     Route: 048
  2. AMLODIPINE [Concomitant]
  3. FISH OIL [Concomitant]
  4. LISINOPRIL [Concomitant]
  5. MULTI-VITAMIN [Concomitant]
  6. PROCRIT [Concomitant]
  7. HEADACHE POWDER [Concomitant]
  8. RIBAVIRIN [Suspect]
     Indication: PRODUCT USED FOR UNKNOWN INDICATION
     Dosage: QD;PO
     Route: 048
  9. PEG-INTRON [Suspect]
     Indication: PRODUCT USED FOR UNKNOWN INDICATION
     Dosage: 150 MCG;SC
     Route: 058

REACTIONS (5)
  - LOSS OF CONSCIOUSNESS [None]
  - EYE HAEMORRHAGE [None]
  - CEREBROVASCULAR ACCIDENT [None]
  - ANAEMIA [None]
  - PAPILLOEDEMA [None]
